FAERS Safety Report 8286689-8 (Version None)
Quarter: 2012Q2

REPORT INFORMATION
  Report Type: 
  Country: None (occurrence: None)
  Receive Date: 20120416
  Receipt Date: 20120413
  Transmission Date: 20120825
  Serious: No
  Sender: FDA-Public Use
  Company Number: US-PFIZER INC-2012092836

PATIENT
  Sex: Female
  Weight: 50.34 kg

DRUGS (6)
  1. FEROSUL [Concomitant]
     Indication: BLOOD DISORDER
     Dosage: 325 MG, DAILY
  2. CHANTIX [Interacting]
     Dosage: 0.5 MG, DAILY
     Route: 048
     Dates: start: 20120410
  3. VENLAFAXINE HCL [Suspect]
     Indication: DEPRESSION
     Dosage: 150 MG, DAILY
  4. RECLAST [Interacting]
     Indication: ARTHRITIS
     Dosage: UNK
     Route: 042
     Dates: start: 20120412
  5. OMEPRAZOLE [Concomitant]
     Indication: GASTRIC ULCER
     Dosage: 20 MG, 2X/DAY
  6. CHANTIX [Interacting]
     Indication: SMOKING CESSATION THERAPY
     Dosage: UNK
     Route: 048

REACTIONS (4)
  - DRUG INTERACTION [None]
  - DYSGEUSIA [None]
  - ABDOMINAL PAIN UPPER [None]
  - DRUG INEFFECTIVE [None]
